FAERS Safety Report 24216726 (Version 1)
Quarter: 2024Q3

REPORT INFORMATION
  Report Type: Spontaneous
  Country: US (occurrence: US)
  Receive Date: 20240816
  Receipt Date: 20240816
  Transmission Date: 20241017
  Serious: Yes (Other)
  Sender: TORRENT
  Company Number: US-TORRENT-00013711

PATIENT
  Sex: Female

DRUGS (8)
  1. ARIPIPRAZOLE [Suspect]
     Active Substance: ARIPIPRAZOLE
     Indication: Schizoaffective disorder bipolar type
     Dosage: LONG ACTING INJECTABLE (LAI)
     Route: 030
     Dates: start: 202110, end: 202201
  2. RISPERIDONE [Suspect]
     Active Substance: RISPERIDONE
     Indication: Schizoaffective disorder bipolar type
     Route: 065
     Dates: start: 201703, end: 201705
  3. BUPROPION [Suspect]
     Active Substance: BUPROPION
     Indication: Schizoaffective disorder bipolar type
     Route: 065
     Dates: start: 201709, end: 201803
  4. DIVALPROEX SODIUM [Suspect]
     Active Substance: DIVALPROEX SODIUM
     Indication: Schizoaffective disorder bipolar type
     Dosage: 250MG 3 TIMES A DAY
     Route: 065
     Dates: start: 201612, end: 201705
  5. HALOPERIDOL [Suspect]
     Active Substance: HALOPERIDOL
     Indication: Schizoaffective disorder bipolar type
     Route: 065
     Dates: start: 202201, end: 202204
  6. OXCARBAZEPINE [Suspect]
     Active Substance: OXCARBAZEPINE
     Indication: Schizoaffective disorder bipolar type
     Dosage: MAX. DAILY DOSE 1200
     Route: 065
     Dates: start: 201911, end: 202005
  7. PALIPERIDONE [Suspect]
     Active Substance: PALIPERIDONE
     Indication: Schizoaffective disorder bipolar type
     Dosage: 6MILLIGRAMS (MG) TWICE A DAY (BID) (MODIFIED TO ?PALIPERIDONE 6MG ONCE A DAY (OD)
     Route: 065
     Dates: start: 201612, end: 201703
  8. QUETIAPINE [Suspect]
     Active Substance: QUETIAPINE
     Indication: Schizoaffective disorder bipolar type
     Route: 065
     Dates: start: 202006, end: 202102

REACTIONS (6)
  - Fatigue [Unknown]
  - Somnolence [Unknown]
  - Disturbance in attention [Unknown]
  - Increased appetite [Unknown]
  - Peripheral swelling [Unknown]
  - Schizophrenia [Unknown]
